FAERS Safety Report 20567780 (Version 2)
Quarter: 2022Q2

REPORT INFORMATION
  Report Type: Spontaneous
  Country: US (occurrence: US)
  Receive Date: 20220308
  Receipt Date: 20220422
  Transmission Date: 20220721
  Serious: No
  Sender: FDA-Public Use
  Company Number: US-LUPIN PHARMACEUTICALS INC.-2022-03286

PATIENT
  Sex: Male
  Weight: 70.295 kg

DRUGS (2)
  1. LISINOPRIL [Suspect]
     Active Substance: LISINOPRIL
     Indication: Blood pressure increased
     Dosage: 20 MG
     Route: 048
  2. LISINOPRIL [Suspect]
     Active Substance: LISINOPRIL
     Indication: Blood pressure increased
     Dosage: 30 MG
     Route: 048

REACTIONS (4)
  - Feeling abnormal [Unknown]
  - Product commingling [Unknown]
  - Product dispensing error [Unknown]
  - Incorrect dose administered [Unknown]
